FAERS Safety Report 8584941-X (Version None)
Quarter: 2012Q3

REPORT INFORMATION
  Report Type: 
  Country: None (occurrence: None)
  Receive Date: 20120810
  Receipt Date: 20120806
  Transmission Date: 20120928
  Serious: Yes (Other)
  Sender: FDA-Public Use
  Company Number: US-PFIZER INC-2012191217

PATIENT
  Age: 96 Year
  Sex: Female
  Weight: 36 kg

DRUGS (6)
  1. SEROQUEL [Suspect]
     Indication: DEMENTIA ALZHEIMER'S TYPE
     Dosage: UNK
  2. PLAVIX [Concomitant]
     Dosage: 75 MG, 2X/WEEK
  3. ALPRAZOLAM [Suspect]
     Dosage: 0.5 MG, 2X/DAY
     Route: 048
     Dates: start: 20120622
  4. NAMENDA [Concomitant]
     Indication: DEMENTIA ALZHEIMER'S TYPE
     Dosage: 0.10 MG, 2X/DAY
  5. MIRTAZAPINE [Concomitant]
     Indication: ANTIDEPRESSANT THERAPY
     Dosage: 7.5 MG, DAILY IN MORNING
  6. CYPROHEPTADINE [Concomitant]
     Dosage: ONE AND HALF TEASPOONFUL DAILY EVERY NIGHT

REACTIONS (10)
  - POLLAKIURIA [None]
  - GAIT DISTURBANCE [None]
  - MUSCULAR WEAKNESS [None]
  - DYSSTASIA [None]
  - IMMOBILE [None]
  - VISION BLURRED [None]
  - WEIGHT DECREASED [None]
  - DECREASED APPETITE [None]
  - HYPERSOMNIA [None]
  - SEDATION [None]
